FAERS Safety Report 9407412 (Version 1)
Quarter: 2013Q3

REPORT INFORMATION
  Report Type: Report from Study
  Country: FR (occurrence: FR)
  Receive Date: 20130718
  Receipt Date: 20130718
  Transmission Date: 20140515
  Serious: Yes (Death, Other)
  Sender: FDA-Public Use
  Company Number: FR-009507513-1106FRA00011

PATIENT
  Age: 61 Year
  Sex: Female
  Weight: 120 kg

DRUGS (7)
  1. SITAGLIPTIN PHOSPHATE [Suspect]
     Indication: TYPE 2 DIABETES MELLITUS
     Dosage: 100 MG, QD
     Route: 048
     Dates: start: 20100223, end: 20110403
  2. NOVOMIX [Concomitant]
     Indication: TYPE 2 DIABETES MELLITUS
     Dosage: 80 IU, UNK
     Route: 058
     Dates: end: 20110403
  3. THERAPY UNSPECIFIED [Concomitant]
     Indication: DYSLIPIDAEMIA
  4. THERAPY UNSPECIFIED [Concomitant]
     Indication: RENAL FAILURE
  5. RAMIPRIL [Concomitant]
     Indication: HYPERTENSION
     Dosage: 1 DF, QD
     Dates: start: 20000101
  6. LASILIX [Concomitant]
     Indication: HYPERTENSION
     Dosage: 1 DF, QD
     Dates: start: 20050101
  7. COVERSYL (PERINDOPRIL ARGININE) [Concomitant]
     Indication: HYPERTENSION
     Dosage: 1 DF, QD
     Dates: start: 20070101

REACTIONS (2)
  - Ruptured cerebral aneurysm [Fatal]
  - Hypoglycaemia [Recovered/Resolved]
